FAERS Safety Report 5327549-1 (Version None)
Quarter: 2007Q2

REPORT INFORMATION
  Report Type: 
  Country: None (occurrence: None)
  Receive Date: 20070517
  Receipt Date: 20070201
  Transmission Date: 20071010
  Serious: Yes (Hospitalization)
  Sender: FDA-Public Use
  Company Number: US-JNJFOC-20070104176

PATIENT
  Age: 39 Year
  Sex: Female

DRUGS (5)
  1. TRAMADOL HCL [Suspect]
     Indication: INTENTIONAL OVERDOSE
     Route: 065
  2. ACETAMINOPHEN W/ PROPOXYPHENE HCL [Suspect]
     Indication: INTENTIONAL OVERDOSE
     Route: 048
  3. OTHER ANTIHISTAMINE [Suspect]
     Indication: INTENTIONAL OVERDOSE
     Route: 065
  4. ETHANOL [Suspect]
     Indication: INTENTIONAL OVERDOSE
     Route: 065
  5. ASPIRIN [Suspect]
     Indication: DRUG USE FOR UNKNOWN INDICATION
     Route: 065

REACTIONS (6)
  - AGITATION [None]
  - CONVULSION [None]
  - DEPRESSED MOOD [None]
  - GALLBLADDER DISORDER [None]
  - INTENTIONAL OVERDOSE [None]
  - UNRESPONSIVE TO STIMULI [None]
